FAERS Safety Report 5339265-0 (Version None)
Quarter: 2007Q2

REPORT INFORMATION
  Report Type: 
  Country: None (occurrence: None)
  Receive Date: 20070525
  Receipt Date: 20070515
  Transmission Date: 20071010
  Serious: Yes (Other)
  Sender: FDA-Public Use
  Company Number: 16518

PATIENT
  Age: 24 Year
  Sex: Male

DRUGS (9)
  1. DOXORUBICIN HCL [Suspect]
     Indication: DIFFUSE LARGE B-CELL LYMPHOMA
  2. VINCRISTINE [Suspect]
     Indication: DIFFUSE LARGE B-CELL LYMPHOMA
  3. CYCLOPHOSPHAMIDE [Suspect]
     Indication: DIFFUSE LARGE B-CELL LYMPHOMA
  4. STEROIDS [Concomitant]
  5. PREDNISONE TAB [Concomitant]
  6. LOPINAVIR [Concomitant]
  7. RITONAVIR [Concomitant]
  8. EFAVIRENZ [Concomitant]
  9. LAMIVUDINE [Concomitant]

REACTIONS (2)
  - DISEASE RECURRENCE [None]
  - HEPATITIS B [None]
